FAERS Safety Report 8209281-X (Version None)
Quarter: 2012Q1

REPORT INFORMATION
  Report Type: 
  Country: None (occurrence: None)
  Receive Date: 20120314
  Receipt Date: 20120306
  Transmission Date: 20120608
  Serious: Yes (Other)
  Sender: FDA-Public Use
  Company Number: US-BAYER-201032146NA

PATIENT
  Age: 24 Year
  Sex: Female
  Weight: 86.621 kg

DRUGS (9)
  1. NICODERM [Concomitant]
  2. ZOLOFT [Concomitant]
  3. PERCOCET [Concomitant]
     Indication: UPPER RESPIRATORY TRACT INFECTION
  4. LEVAQUIN [Concomitant]
     Dosage: 750 MG, UNK
  5. WARFARIN SODIUM [Concomitant]
     Dosage: 5 MG, UNK
  6. YASMIN [Suspect]
     Indication: ORAL CONTRACEPTION
     Dosage: UNK UNK, QD
     Route: 048
     Dates: start: 20091001
  7. IBUPROFEN [Concomitant]
     Indication: UPPER RESPIRATORY TRACT INFECTION
  8. AZITHROMYCIN [Concomitant]
     Dosage: UNK
     Dates: start: 20100406
  9. YAZ [Suspect]
     Indication: ORAL CONTRACEPTION
     Dosage: UNK UNK, QD
     Dates: start: 20090701

REACTIONS (3)
  - DEPRESSION [None]
  - PULMONARY EMBOLISM [None]
  - TRAUMATIC LUNG INJURY [None]
